FAERS Safety Report 14302310 (Version 1)
Quarter: 2017Q4

REPORT INFORMATION
  Report Type: Spontaneous
  Country: US (occurrence: US)
  Receive Date: 20171219
  Receipt Date: 20171219
  Transmission Date: 20180321
  Serious: No
  Sender: FDA-Public Use
  Company Number: US-SUPERNUS PHARMACEUTICALS, INC.-2017SUP00243

PATIENT
  Age: 29 Year
  Sex: Female

DRUGS (2)
  1. TROKENDI XR [Suspect]
     Active Substance: TOPIRAMATE
     Dosage: 1 TABLETS, 1X/DAY
     Dates: start: 2015
  2. TROKENDI XR [Suspect]
     Active Substance: TOPIRAMATE
     Dosage: 1 TABLETS, 1X/DAY
     Dates: start: 2015

REACTIONS (3)
  - Abdominal pain lower [Unknown]
  - Appendix disorder [Unknown]
  - Ovarian disorder [Unknown]

NARRATIVE: CASE EVENT DATE: 201708
